FAERS Safety Report 10082095 (Version 2)
Quarter: 2014Q2

REPORT INFORMATION
  Report Type: Spontaneous
  Country: US (occurrence: US)
  Receive Date: 20140416
  Receipt Date: 20140416
  Transmission Date: 20141212
  Serious: Yes (Other)
  Sender: FDA-Public Use
  Company Number: US201205002780

PATIENT
  Age: 58 Year
  Sex: Female

DRUGS (1)
  1. BYDUREON 2MG VIAL + SYRINGE [Suspect]
     Route: 058
     Dates: end: 201312

REACTIONS (2)
  - Injection site nodule [Recovered/Resolved]
  - Injection site haemorrhage [Unknown]
